FAERS Safety Report 5436198-6 (Version None)
Quarter: 2007Q3

REPORT INFORMATION
  Report Type: 
  Country: None (occurrence: None)
  Receive Date: 20070831
  Receipt Date: 20070822
  Transmission Date: 20080115
  Serious: No
  Sender: FDA-Public Use
  Company Number: A0671756A

PATIENT

DRUGS (2)
  1. ALLI [Suspect]
  2. DIET PILL UNSPECIFIED [Concomitant]

REACTIONS (2)
  - ADVERSE DRUG REACTION [None]
  - WEIGHT INCREASED [None]
